FAERS Safety Report 20250483 (Version 1)
Quarter: 2021Q4

REPORT INFORMATION
  Report Type: Spontaneous
  Country: US (occurrence: US)
  Receive Date: 20211229
  Receipt Date: 20211229
  Transmission Date: 20220303
  Serious: Yes (Death, Other)
  Sender: FDA-Public Use
  Company Number: US-PURDUE-USA-2020-0217667

PATIENT
  Sex: Male

DRUGS (4)
  1. OXYCONTIN [Suspect]
     Active Substance: OXYCODONE HYDROCHLORIDE
     Indication: Foot operation
     Dosage: UNKNOWN
     Route: 048
  2. OXYCONTIN [Suspect]
     Active Substance: OXYCODONE HYDROCHLORIDE
     Indication: Ankle operation
  3. HEROIN [Suspect]
     Active Substance: DIAMORPHINE
     Indication: Foot operation
     Dosage: UNKNOWN
     Route: 065
     Dates: start: 2017
  4. HEROIN [Suspect]
     Active Substance: DIAMORPHINE
     Indication: Ankle operation

REACTIONS (3)
  - Overdose [Fatal]
  - Drug dependence [Unknown]
  - Drug abuse [Unknown]

NARRATIVE: CASE EVENT DATE: 20170903
